FAERS Safety Report 7680156-8 (Version None)
Quarter: 2011Q3

REPORT INFORMATION
  Report Type: 
  Country: None (occurrence: None)
  Receive Date: 20110812
  Receipt Date: 20110810
  Transmission Date: 20111222
  Serious: Yes (Other)
  Sender: FDA-Public Use
  Company Number: US-ABBOTT-11P-163-0719709-00

PATIENT
  Sex: Female
  Weight: 52.21 kg

DRUGS (13)
  1. FOLIC ACID [Concomitant]
     Indication: VITAMIN SUPPLEMENTATION
     Route: 048
     Dates: start: 20100928, end: 20110517
  2. TYLENOL-500 [Concomitant]
     Indication: HEADACHE
     Route: 048
     Dates: start: 20100903, end: 20110415
  3. AMITRIPTYLINE HCL [Concomitant]
     Indication: DEPRESSION
  4. ZOFRAN [Concomitant]
     Indication: NAUSEA
  5. HUMIRA [Suspect]
     Indication: CROHN'S DISEASE
     Dates: start: 20100903, end: 20110517
  6. AMITRIPTYLINE HCL [Concomitant]
     Indication: SLEEP DISORDER
     Route: 048
     Dates: start: 20100903, end: 20110517
  7. NEXIUM [Concomitant]
     Indication: CROHN'S DISEASE
     Route: 048
     Dates: start: 20101001, end: 20110517
  8. PRENATAL VITAMINS [Concomitant]
     Indication: VITAMIN SUPPLEMENTATION
     Route: 048
     Dates: start: 20100928, end: 20110517
  9. FOLIC ACID [Concomitant]
     Indication: ANAEMIA
  10. NEXIUM [Concomitant]
     Indication: DYSPEPSIA
  11. ZOFRAN [Concomitant]
     Indication: VOMITING
     Route: 048
     Dates: start: 20101101, end: 20110517
  12. REGLAN [Concomitant]
     Indication: NAUSEA
     Route: 042
     Dates: start: 20101030, end: 20101130
  13. COFFEE [Concomitant]
     Indication: PRODUCT USED FOR UNKNOWN INDICATION
     Dosage: 1 EVERY 2.5 WEEKS
     Route: 048
     Dates: start: 20100903, end: 20110517

REACTIONS (2)
  - HYPERTHERMIA [None]
  - VOMITING [None]
